FAERS Safety Report 5911426-9 (Version None)
Quarter: 2008Q4

REPORT INFORMATION
  Report Type: 
  Country: None (occurrence: None)
  Receive Date: 20081007
  Receipt Date: 20080924
  Transmission Date: 20090506
  Serious: Yes (Death)
  Sender: FDA-Public Use
  Company Number: JP-ABBOTT-08P-087-0480229-00

PATIENT
  Age: 88 Year
  Sex: Male

DRUGS (10)
  1. LEUPROLIDE ACETATE [Suspect]
     Indication: PROSTATE CANCER STAGE IV
     Route: 058
     Dates: start: 20050516, end: 20050516
  2. LEUPROLIDE ACETATE [Suspect]
     Dates: start: 20051205, end: 20051205
  3. LEUPROLIDE ACETATE [Suspect]
     Dates: start: 20060105, end: 20060105
  4. LEUPROLIDE ACETATE [Suspect]
     Dates: start: 20060327, end: 20060327
  5. LEUPROLIDE ACETATE [Suspect]
     Dates: start: 20060619, end: 20060619
  6. LEUPROLIDE ACETATE [Suspect]
     Dates: start: 20060911, end: 20060911
  7. LEUPROLIDE ACETATE [Suspect]
     Dates: start: 20061204, end: 20061204
  8. LEUPROLIDE ACETATE [Suspect]
     Dates: start: 20070226, end: 20070226
  9. LEUPROLIDE ACETATE [Suspect]
     Dates: start: 20070521, end: 20070521
  10. BICALUTAMIDE [Concomitant]
     Indication: PROSTATE CANCER STAGE IV
     Route: 048
     Dates: end: 20070702

REACTIONS (1)
  - PNEUMONIA ASPIRATION [None]
